FAERS Safety Report 20890325 (Version 6)
Quarter: 2023Q4

REPORT INFORMATION
  Report Type: Report from Study
  Country: US (occurrence: US)
  Receive Date: 20220530
  Receipt Date: 20231018
  Transmission Date: 20240109
  Serious: Yes (Other)
  Sender: FDA-Public Use
  Company Number: US-JNJFOC-20220555276

PATIENT
  Age: 13 Year
  Sex: Female
  Weight: 70.6 kg

DRUGS (3)
  1. INFLIXIMAB [Suspect]
     Active Substance: INFLIXIMAB
     Indication: Inflammatory bowel disease
     Dosage: LAST ADMINISTRATION DATE, PRIOR TO THE EVENT:15 FEB 2021
     Route: 041
     Dates: start: 20160218
  2. ERGOCALCIFEROL [Concomitant]
     Active Substance: ERGOCALCIFEROL
  3. MOTRIN [Concomitant]
     Active Substance: IBUPROFEN

REACTIONS (1)
  - Diffuse large B-cell lymphoma stage III [Recovered/Resolved]

NARRATIVE: CASE EVENT DATE: 20210302
